FAERS Safety Report 19397220 (Version 2)
Quarter: 2021Q3

REPORT INFORMATION
  Report Type: Other
  Country: US (occurrence: US)
  Receive Date: 20210610
  Receipt Date: 20210713
  Transmission Date: 20211014
  Serious: No
  Sender: FDA-Public Use
  Company Number: US-NEUROCRINE BIOSCIENCES INC.-2021NBI02708

PATIENT

DRUGS (22)
  1. MULTIVITAMINS [VITAMINS NOS] [Concomitant]
     Active Substance: VITAMINS
     Indication: BIPOLAR DISORDER
     Dosage: UNK
  2. MULTIVITAMINS [VITAMINS NOS] [Concomitant]
     Active Substance: VITAMINS
     Indication: SCHIZOPHRENIA
  3. FISH OIL [Concomitant]
     Active Substance: FISH OIL
     Indication: SCHIZOPHRENIA
  4. METFORMIN [Concomitant]
     Active Substance: METFORMIN HYDROCHLORIDE
     Indication: SCHIZOPHRENIA
  5. DOXYCINE [Concomitant]
     Indication: BIPOLAR DISORDER
     Dosage: 100 MILLIGRAM
     Route: 065
  6. INGREZZA [Suspect]
     Active Substance: VALBENAZINE
     Dosage: 80 MILLIGRAM, QD, AM
     Route: 048
     Dates: start: 20210401, end: 2021
  7. INGREZZA [Suspect]
     Active Substance: VALBENAZINE
     Dosage: 40 MILLIGRAM, QD
     Route: 048
     Dates: start: 2021, end: 2021
  8. FISH OIL [Concomitant]
     Active Substance: FISH OIL
     Indication: BIPOLAR DISORDER
     Dosage: UNK
  9. HALOPERIDOL. [Concomitant]
     Active Substance: HALOPERIDOL
     Indication: SCHIZOPHRENIA
  10. METFORMIN [Concomitant]
     Active Substance: METFORMIN HYDROCHLORIDE
     Indication: BIPOLAR DISORDER
     Dosage: 500 MILLIGRAM, QD
     Route: 065
  11. DOXYCINE [Concomitant]
     Indication: SCHIZOPHRENIA
  12. INGREZZA [Suspect]
     Active Substance: VALBENAZINE
     Indication: TARDIVE DYSKINESIA
     Dosage: 40 MILLIGRAM, QD
     Route: 048
     Dates: start: 202105
  13. ATORVASTATIN [Concomitant]
     Active Substance: ATORVASTATIN
     Indication: BIPOLAR DISORDER
     Dosage: 40 MILLIGRAM, QD
     Route: 065
  14. PROBIOTICS NOS [Concomitant]
     Active Substance: PROBIOTICS NOS
     Indication: BIPOLAR DISORDER
     Dosage: UNK
  15. LORAZEPAM. [Concomitant]
     Active Substance: LORAZEPAM
     Indication: ANXIETY
     Dosage: 1 MILLIGRAM, PRN
     Route: 048
  16. FENOFIBRATE. [Concomitant]
     Active Substance: FENOFIBRATE
     Indication: BIPOLAR DISORDER
     Dosage: 48 MILLIGRAM, BID
     Route: 065
  17. FENOFIBRATE. [Concomitant]
     Active Substance: FENOFIBRATE
     Indication: SCHIZOPHRENIA
  18. ATORVASTATIN [Concomitant]
     Active Substance: ATORVASTATIN
     Indication: SCHIZOPHRENIA
  19. PREVALITE [Concomitant]
     Active Substance: CHOLESTYRAMINE
     Indication: SCHIZOPHRENIA
  20. HALOPERIDOL. [Concomitant]
     Active Substance: HALOPERIDOL
     Indication: BIPOLAR DISORDER
     Dosage: 10 MILLIGRAM, BID
     Route: 048
  21. PREVALITE [Concomitant]
     Active Substance: CHOLESTYRAMINE
     Indication: BIPOLAR DISORDER
     Dosage: UNK
     Route: 065
  22. PROBIOTICS NOS [Concomitant]
     Active Substance: PROBIOTICS NOS
     Indication: SCHIZOPHRENIA

REACTIONS (3)
  - Trance [Recovered/Resolved]
  - Bradykinesia [Recovered/Resolved]
  - Decreased appetite [Recovered/Resolved]

NARRATIVE: CASE EVENT DATE: 202104
